FAERS Safety Report 23873771 (Version 1)
Quarter: 2024Q2

REPORT INFORMATION
  Report Type: Spontaneous
  Country: US (occurrence: None)
  Receive Date: 20240517
  Receipt Date: 20240517
  Transmission Date: 20240716
  Serious: Yes (Hospitalization)
  Sender: FDA-Public Use
  Company Number: None

PATIENT
  Sex: Female

DRUGS (4)
  1. MEKTOVI [Suspect]
     Active Substance: BINIMETINIB
     Indication: Malignant melanoma
     Dosage: 45MG BID ORAL?
     Route: 048
     Dates: start: 20231220
  2. MEKTOVI [Suspect]
     Active Substance: BINIMETINIB
     Indication: Malignant melanoma
  3. BRAFTOVI [Suspect]
     Active Substance: ENCORAFENIB
     Indication: Malignant melanoma
     Dosage: 450MG DAILY ORAL
     Route: 048
     Dates: start: 20231220
  4. KEPPRA [Concomitant]
     Active Substance: LEVETIRACETAM

REACTIONS (10)
  - Arthralgia [None]
  - Gait disturbance [None]
  - Arthralgia [None]
  - Thrombosis [None]
  - Synovial rupture [None]
  - Back pain [None]
  - Generalised tonic-clonic seizure [None]
  - Eye pain [None]
  - Visual impairment [None]
  - Visual impairment [None]
